FAERS Safety Report 12131908 (Version 1)
Quarter: 2016Q1

REPORT INFORMATION
  Report Type: Spontaneous
  Country: FR (occurrence: FR)
  Receive Date: 20160301
  Receipt Date: 20160301
  Transmission Date: 20160526
  Serious: Yes (Hospitalization, Other)
  Sender: FDA-Public Use
  Company Number: FR-SUNOVION-2016SUN000497

PATIENT

DRUGS (6)
  1. RIVOTRIL [Concomitant]
     Active Substance: CLONAZEPAM
  2. ZEBINIX [Suspect]
     Active Substance: ESLICARBAZEPINE ACETATE
     Indication: PARTIAL SEIZURES
     Dosage: 800 MG, QD
     Route: 048
     Dates: start: 201309
  3. ZEBINIX [Suspect]
     Active Substance: ESLICARBAZEPINE ACETATE
     Dosage: 2400 MG, QD
     Route: 048
     Dates: start: 201511
  4. DIHYDAN [Concomitant]
     Active Substance: PHENYTOIN
  5. ZEBINIX [Suspect]
     Active Substance: ESLICARBAZEPINE ACETATE
     Dosage: 1600 MG, QD
     Route: 048
  6. EPITOMAX [Concomitant]
     Active Substance: TOPIRAMATE

REACTIONS (4)
  - Overdose [Unknown]
  - Drug ineffective [Unknown]
  - Seizure [Recovered/Resolved]
  - Drug dose titration not performed [Unknown]
